FAERS Safety Report 8385916-6 (Version None)
Quarter: 2012Q2

REPORT INFORMATION
  Report Type: 
  Country: None (occurrence: None)
  Receive Date: 20120525
  Receipt Date: 20120515
  Transmission Date: 20120825
  Serious: Yes (Other)
  Sender: FDA-Public Use
  Company Number: CA-JNJFOC-20120512704

PATIENT
  Sex: Female
  Weight: 108 kg

DRUGS (3)
  1. AZOTHIOPRINE [Concomitant]
     Route: 042
  2. ZOLOFT [Concomitant]
     Route: 065
  3. REMICADE [Suspect]
     Indication: CROHN'S DISEASE
     Route: 042
     Dates: start: 20090921

REACTIONS (1)
  - NEPHROLITHIASIS [None]
